FAERS Safety Report 25134844 (Version 1)
Quarter: 2025Q1

REPORT INFORMATION
  Report Type: Spontaneous
  Country: US (occurrence: US)
  Receive Date: 20250328
  Receipt Date: 20250328
  Transmission Date: 20250409
  Serious: Yes (Other)
  Sender: MYLAN
  Company Number: US-MYLANLABS-2025M1027124

PATIENT
  Age: 81 Year
  Sex: Female

DRUGS (28)
  1. AMLODIPINE [Suspect]
     Active Substance: AMLODIPINE BESYLATE
     Indication: Product used for unknown indication
  2. AMLODIPINE [Suspect]
     Active Substance: AMLODIPINE BESYLATE
     Route: 065
  3. AMLODIPINE [Suspect]
     Active Substance: AMLODIPINE BESYLATE
     Route: 065
  4. AMLODIPINE [Suspect]
     Active Substance: AMLODIPINE BESYLATE
  5. SIMVASTATIN [Suspect]
     Active Substance: SIMVASTATIN
     Indication: Product used for unknown indication
  6. SIMVASTATIN [Suspect]
     Active Substance: SIMVASTATIN
     Route: 065
  7. SIMVASTATIN [Suspect]
     Active Substance: SIMVASTATIN
     Route: 065
  8. SIMVASTATIN [Suspect]
     Active Substance: SIMVASTATIN
  9. METOPROLOL [Suspect]
     Active Substance: METOPROLOL
     Indication: Product used for unknown indication
  10. METOPROLOL [Suspect]
     Active Substance: METOPROLOL
     Route: 065
  11. METOPROLOL [Suspect]
     Active Substance: METOPROLOL
     Route: 065
  12. METOPROLOL [Suspect]
     Active Substance: METOPROLOL
  13. ASPIRIN [Suspect]
     Active Substance: ASPIRIN
     Indication: Product used for unknown indication
  14. ASPIRIN [Suspect]
     Active Substance: ASPIRIN
     Route: 065
  15. ASPIRIN [Suspect]
     Active Substance: ASPIRIN
     Route: 065
  16. ASPIRIN [Suspect]
     Active Substance: ASPIRIN
  17. LISINOPRIL [Suspect]
     Active Substance: LISINOPRIL
     Indication: Product used for unknown indication
  18. LISINOPRIL [Suspect]
     Active Substance: LISINOPRIL
     Route: 065
  19. LISINOPRIL [Suspect]
     Active Substance: LISINOPRIL
     Route: 065
  20. LISINOPRIL [Suspect]
     Active Substance: LISINOPRIL
  21. LABETALOL [Suspect]
     Active Substance: LABETALOL
     Indication: Product used for unknown indication
  22. LABETALOL [Suspect]
     Active Substance: LABETALOL
     Route: 065
  23. LABETALOL [Suspect]
     Active Substance: LABETALOL
     Route: 065
  24. LABETALOL [Suspect]
     Active Substance: LABETALOL
  25. OSIMERTINIB [Suspect]
     Active Substance: OSIMERTINIB
     Indication: EGFR gene mutation
     Dosage: 80 MILLIGRAM, QD
  26. OSIMERTINIB [Suspect]
     Active Substance: OSIMERTINIB
     Indication: Non-small cell lung cancer stage III
     Dosage: 80 MILLIGRAM, QD
     Route: 065
  27. OSIMERTINIB [Suspect]
     Active Substance: OSIMERTINIB
  28. OSIMERTINIB [Suspect]
     Active Substance: OSIMERTINIB
     Route: 065

REACTIONS (1)
  - Subacute cutaneous lupus erythematosus [Recovered/Resolved]
